FAERS Safety Report 4594176-3 (Version None)
Quarter: 2005Q1

REPORT INFORMATION
  Report Type: 
  Country: None (occurrence: None)
  Receive Date: 20050301
  Receipt Date: 20050217
  Transmission Date: 20050727
  Serious: Yes (Hospitalization)
  Sender: FDA-Public Use
  Company Number: FR-GLAXOSMITHKLINE-B0371905A

PATIENT
  Age: 49 Year
  Sex: Male
  Weight: 55 kg

DRUGS (3)
  1. COMBIVIR [Suspect]
     Indication: HIV INFECTION
     Dosage: 2UNIT PER DAY
     Route: 048
     Dates: start: 20040824, end: 20050115
  2. LIPANTHYL [Suspect]
     Dosage: 200MG PER DAY
     Route: 048
     Dates: end: 20050115
  3. KALETRA [Suspect]
     Indication: HIV INFECTION
     Dosage: 3UNIT TWICE PER DAY
     Route: 048
     Dates: start: 20040824, end: 20050115

REACTIONS (6)
  - ABDOMINAL PAIN UPPER [None]
  - BLOOD CREATINE PHOSPHOKINASE INCREASED [None]
  - DILATATION VENTRICULAR [None]
  - MYOCARDIAL INFARCTION [None]
  - TROPONIN INCREASED [None]
  - VENTRICULAR HYPOKINESIA [None]
